FAERS Safety Report 21004359 (Version 9)
Quarter: 2023Q2

REPORT INFORMATION
  Report Type: Report from Study
  Country: GB (occurrence: GB)
  Receive Date: 20220624
  Receipt Date: 20230612
  Transmission Date: 20230721
  Serious: Yes (Death, Hospitalization)
  Sender: FDA-Public Use
  Company Number: GB-ROCHE-2760557

PATIENT
  Age: 50 Year
  Sex: Female
  Weight: 67.5 kg

DRUGS (9)
  1. DOCETAXEL [Suspect]
     Active Substance: DOCETAXEL
     Indication: Breast cancer
     Dosage: 132 MILLIGRAM, Q3W
     Route: 042
     Dates: start: 20160825, end: 20161027
  2. DOCETAXEL [Suspect]
     Active Substance: DOCETAXEL
     Dosage: 132 MILLIGRAM, Q3W
     Route: 042
     Dates: start: 20160825, end: 20160825
  3. TRASTUZUMAB [Suspect]
     Active Substance: TRASTUZUMAB
     Indication: Breast cancer
     Dosage: 567 MILLIGRAM
     Route: 042
     Dates: start: 20160825, end: 20160825
  4. TRASTUZUMAB [Suspect]
     Active Substance: TRASTUZUMAB
     Dosage: 420 MILLIGRAM, Q3W
     Route: 042
     Dates: start: 20160915, end: 20201105
  5. PERTUZUMAB [Suspect]
     Active Substance: PERTUZUMAB
     Indication: Breast cancer
     Dosage: 840 MILLIGRAM
     Route: 042
     Dates: start: 20160825, end: 20160825
  6. PERTUZUMAB [Suspect]
     Active Substance: PERTUZUMAB
     Dosage: 420 MILLIGRAM, Q3W
     Route: 042
     Dates: start: 20160915, end: 20201105
  7. DEXAMETHASONE [Concomitant]
     Active Substance: DEXAMETHASONE
     Indication: Headache
     Dosage: 8 MILLIGRAM, Q3W
     Route: 048
     Dates: start: 20160825
  8. LAMICTAL [Concomitant]
     Active Substance: LAMOTRIGINE
     Indication: Epilepsy
     Dosage: 75 MILLIGRAM, QID
     Route: 048
  9. METOCLOPRAMIDE [Concomitant]
     Active Substance: METOCLOPRAMIDE
     Indication: Nausea
     Dosage: 10 MILLIGRAM
     Route: 048
     Dates: start: 20160826, end: 20161119

REACTIONS (4)
  - Death [Fatal]
  - Muscle spasms [Not Recovered/Not Resolved]
  - Tooth abscess [Recovered/Resolved]
  - Mouth ulceration [Recovered/Resolved]

NARRATIVE: CASE EVENT DATE: 20161026
